FAERS Safety Report 22258500 (Version 1)
Quarter: 2023Q2

REPORT INFORMATION
  Report Type: Spontaneous
  Country: CN (occurrence: CN)
  Receive Date: 20230427
  Receipt Date: 20230427
  Transmission Date: 20230721
  Serious: Yes (Death, Other)
  Sender: FDA-Public Use
  Company Number: CN-AJANTA-2023AJA00067

PATIENT
  Age: 2 Year
  Sex: Female

DRUGS (2)
  1. VORICONAZOLE [Suspect]
     Active Substance: VORICONAZOLE
     Indication: Penicillium infection
  2. AMPHOTERICIN B [Suspect]
     Active Substance: AMPHOTERICIN B
     Indication: Penicillium infection

REACTIONS (5)
  - Hepatosplenomegaly [Fatal]
  - Abdominal distension [Fatal]
  - Pyrexia [Fatal]
  - Jaundice [Fatal]
  - Cough [Fatal]
